FAERS Safety Report 16395181 (Version 1)
Quarter: 2019Q2

REPORT INFORMATION
  Report Type: Spontaneous
  Country: US (occurrence: US)
  Receive Date: 20190605
  Receipt Date: 20190605
  Transmission Date: 20190711
  Serious: No
  Sender: FDA-Public Use
  Company Number: US-ASTRAZENECA-2019SE71102

PATIENT
  Age: 28021 Day
  Weight: 59 kg

DRUGS (3)
  1. PULMICORT FLEXHALER [Suspect]
     Active Substance: BUDESONIDE
     Indication: SINUSITIS
     Dosage: 180.0UG UNKNOWN
     Route: 055
     Dates: start: 20190429
  2. PULMICORT FLEXHALER [Suspect]
     Active Substance: BUDESONIDE
     Indication: UPPER-AIRWAY COUGH SYNDROME
     Dosage: 180.0UG UNKNOWN
     Route: 055
     Dates: start: 20190429
  3. PULMICORT FLEXHALER [Suspect]
     Active Substance: BUDESONIDE
     Indication: THROAT IRRITATION
     Dosage: 180.0UG UNKNOWN
     Route: 055
     Dates: start: 20190429

REACTIONS (7)
  - Dysphonia [Not Recovered/Not Resolved]
  - Product use in unapproved indication [Unknown]
  - Malaise [Not Recovered/Not Resolved]
  - Off label use [Not Recovered/Not Resolved]
  - Device issue [Unknown]
  - Intentional device misuse [Recovered/Resolved]
  - Hypoacusis [Not Recovered/Not Resolved]

NARRATIVE: CASE EVENT DATE: 20190429
